FAERS Safety Report 10568179 (Version 1)
Quarter: 2014Q4

REPORT INFORMATION
  Report Type: Spontaneous
  Country: US (occurrence: None)
  Receive Date: 20141030
  Receipt Date: 20141030
  Transmission Date: 20150529
  Serious: Yes (Other)
  Sender: FDA-Public Use
  Company Number: 397614

PATIENT
  Age: 74 Year
  Sex: Female
  Weight: 69.8 kg

DRUGS (3)
  1. LEVOTHYROXINE (LEVOTHYROXINE) [Concomitant]
     Active Substance: LEVOTHYROXINE
  2. CALCIUM (CALCIUM) [Concomitant]
     Active Substance: CALCIUM
  3. VAGIFEM [Suspect]
     Active Substance: ESTRADIOL
     Indication: VAGINAL HAEMORRHAGE
     Route: 067
     Dates: start: 20131027

REACTIONS (5)
  - Dizziness [None]
  - Vaginal haemorrhage [None]
  - Headache [None]
  - Chest pain [None]
  - Nausea [None]

NARRATIVE: CASE EVENT DATE: 2013
